FAERS Safety Report 14290752 (Version 4)
Quarter: 2018Q1

REPORT INFORMATION
  Report Type: Spontaneous
  Country: SI (occurrence: SI)
  Receive Date: 20171215
  Receipt Date: 20180330
  Transmission Date: 20180509
  Serious: Yes (Death, Hospitalization, Other)
  Sender: FDA-Public Use
  Company Number: SI-AMGEN-SVNSP2017183780

PATIENT
  Age: 88 Year
  Sex: Female
  Weight: 47.5 kg

DRUGS (1)
  1. PROLIA [Suspect]
     Active Substance: DENOSUMAB
     Indication: OSTEOPOROSIS POSTMENOPAUSAL
     Dosage: 60 MG, Q6MO
     Route: 058
     Dates: start: 201412

REACTIONS (4)
  - Impaired healing [Unknown]
  - Sepsis [Fatal]
  - Femur fracture [Fatal]
  - Fall [Unknown]

NARRATIVE: CASE EVENT DATE: 20171204
